FAERS Safety Report 24437517 (Version 1)
Quarter: 2024Q4

REPORT INFORMATION
  Report Type: Spontaneous
  Country: US (occurrence: None)
  Receive Date: 20241011
  Receipt Date: 20241011
  Transmission Date: 20250115
  Serious: Yes (Death)
  Sender: Public
  Company Number: None

PATIENT
  Age: 89 Year
  Sex: Male

DRUGS (1)
  1. PROCRIT [Suspect]
     Active Substance: ERYTHROPOIETIN
     Indication: Anaemia of chronic disease
     Dosage: OTHER QUANTITY : 4000 UNIT;?FREQUENCY : WEEKLY;?

REACTIONS (1)
  - Death [None]
